FAERS Safety Report 16391410 (Version 1)
Quarter: 2019Q2

REPORT INFORMATION
  Report Type: Spontaneous
  Country: US (occurrence: US)
  Receive Date: 20190604
  Receipt Date: 20190604
  Transmission Date: 20190711
  Serious: Yes (Other)
  Sender: FDA-Public Use
  Company Number: US-AMGEN-USASP2019086240

PATIENT
  Age: 72 Year
  Sex: Female

DRUGS (22)
  1. SYNTHROID [Concomitant]
     Active Substance: LEVOTHYROXINE SODIUM
     Dosage: 100 MICROGRAM (1AT MORNING FOR 6 DAYS, 1/2 TABLET ON 7TH DAY)
  2. FLAXSEED OIL [LINUM USITATISSIMUM OIL] [Concomitant]
     Dosage: UNK
  3. MELATONIN [Concomitant]
     Active Substance: MELATONIN
     Dosage: 5 MILLIGRAM, QD
  4. KENALOG [Concomitant]
     Active Substance: TRIAMCINOLONE ACETONIDE
     Dosage: UNK UNK, AS NECESSARY
  5. VOLTAREN [DICLOFENAC] [Concomitant]
     Active Substance: DICLOFENAC SODIUM
     Dosage: UNK
  6. RANITIDINE. [Concomitant]
     Active Substance: RANITIDINE
     Dosage: 300 MILLIGRAM, QD
  7. CELEBREX [Concomitant]
     Active Substance: CELECOXIB
     Dosage: 200 MILLIGRAM, QD
  8. XELJANZ [Concomitant]
     Active Substance: TOFACITINIB CITRATE
     Indication: PSORIATIC ARTHROPATHY
  9. ASPIRIN 81 [Concomitant]
     Active Substance: ASPIRIN
     Dosage: 81 MILLIGRAM, QD
  10. PENLAC [Concomitant]
     Active Substance: CICLOPIROX
     Dosage: UNK
  11. CLARITIN-D NOS [Concomitant]
     Active Substance: LORATADINE\PSEUDOEPHEDRINE SULFATE
     Dosage: 10 MILLIGRAM
  12. MAXALT [Concomitant]
     Active Substance: RIZATRIPTAN BENZOATE
     Dosage: 5 MILLIGRAM
  13. BENZONATATE. [Concomitant]
     Active Substance: BENZONATATE
     Indication: COUGH
     Dosage: 100 MILLIGRAM, TID
  14. FLUTICASONE. [Concomitant]
     Active Substance: FLUTICASONE
     Dosage: 50 MICROGRAM, QD (1 PUFF 2/DAILY AT MORNING AND NIGHT)
     Route: 045
  15. ENBREL [Suspect]
     Active Substance: ETANERCEPT
     Indication: PRODUCT USED FOR UNKNOWN INDICATION
     Dosage: UNK
     Route: 065
  16. TYLENOL EXTRA STRENGTH [Concomitant]
     Active Substance: ACETAMINOPHEN
     Dosage: UNK UNK, AS NECESSARY (UP TO SIX)
  17. BETAMETHASONE DIPROPIONATE. [Concomitant]
     Active Substance: BETAMETHASONE DIPROPIONATE
     Dosage: UNK (APPLY TOPICALLY 2/DAILY ELBOWS, HANDS 2 WKS)
  18. CITRACAL CALCIUM PEARLS + D3 [Concomitant]
     Dosage: UNK UNK, BID
  19. ALBUTEROL SULFATE. [Concomitant]
     Active Substance: ALBUTEROL SULFATE
     Dosage: 90 MICROGRAM
  20. OMEPRAZOLE. [Concomitant]
     Active Substance: OMEPRAZOLE
     Dosage: 20 MILLIGRAM, BID
  21. XELJANZ [Concomitant]
     Active Substance: TOFACITINIB CITRATE
     Indication: RHEUMATOID ARTHRITIS
     Dosage: 5 MILLIGRAM, BID
  22. LIDOCAINE. [Concomitant]
     Active Substance: LIDOCAINE
     Dosage: UNK (VISC SOLUTION, NO MORE THAN 8/DAY, 15 ML)

REACTIONS (27)
  - Squamous cell carcinoma [Unknown]
  - Asthma [Unknown]
  - Influenza [Recovering/Resolving]
  - Carpal tunnel syndrome [Unknown]
  - Lipoma [Unknown]
  - Large intestinal polypectomy [Unknown]
  - Jaw operation [Unknown]
  - Thyroid cancer [Unknown]
  - Incontinence [Unknown]
  - Psoriasis [Unknown]
  - Rheumatoid arthritis [Unknown]
  - Idiopathic pulmonary fibrosis [Unknown]
  - Migraine [Unknown]
  - Osteopenia [Unknown]
  - Osteoarthritis [Unknown]
  - Cataract operation [Unknown]
  - Cystitis [Recovering/Resolving]
  - Vertigo [Unknown]
  - Cardiac murmur [Unknown]
  - Psoriatic arthropathy [Unknown]
  - Sleep apnoea syndrome [Unknown]
  - Spinal stenosis [Unknown]
  - Gastrooesophageal reflux disease [Unknown]
  - Renal cyst [Unknown]
  - Swollen tongue [Unknown]
  - Foot operation [Unknown]
  - Sinusitis [Recovering/Resolving]

NARRATIVE: CASE EVENT DATE: 2007
